FAERS Safety Report 4768653-6 (Version None)
Quarter: 2005Q3

REPORT INFORMATION
  Report Type: 
  Country: None (occurrence: None)
  Receive Date: 20050913
  Receipt Date: 20050906
  Transmission Date: 20060218
  Serious: Yes (Life-Threatening)
  Sender: FDA-Public Use
  Company Number: 2005-132269-NL

PATIENT
  Sex: Male

DRUGS (1)
  1. ZEMURON [Suspect]
     Indication: ANAESTHESIA
     Dosage: DF

REACTIONS (3)
  - BLOOD PRESSURE DECREASED [None]
  - HEART RATE DECREASED [None]
  - OXYGEN SATURATION DECREASED [None]
